FAERS Safety Report 5110171-X (Version None)
Quarter: 2006Q3

REPORT INFORMATION
  Report Type: 
  Country: None (occurrence: None)
  Receive Date: 20060921
  Receipt Date: 20060908
  Transmission Date: 20061208
  Serious: Yes (Other)
  Sender: FDA-Public Use
  Company Number: JP-AVENTIS-200612803JP

PATIENT
  Age: 89 Year
  Sex: Male
  Weight: 60 kg

DRUGS (14)
  1. LASIX [Suspect]
     Indication: CARDIAC FAILURE
     Route: 048
     Dates: start: 20051004
  2. CEROCRAL [Suspect]
     Indication: CEREBRAL INFARCTION
     Route: 048
  3. PARIET [Concomitant]
     Indication: GASTRIC ULCER
     Route: 048
     Dates: start: 20050531
  4. BLOPRESS [Concomitant]
     Indication: HYPERTENSION
     Route: 048
     Dates: start: 20031202
  5. ASPIRIN [Concomitant]
     Indication: TRANSIENT ISCHAEMIC ATTACK
     Route: 048
     Dates: start: 20060816
  6. ASPIRIN [Concomitant]
     Indication: DIZZINESS
     Route: 048
     Dates: start: 20060816
  7. ADALAT [Concomitant]
     Indication: HYPERTENSION
     Route: 048
     Dates: start: 20040318
  8. ZYLORIC [Concomitant]
     Indication: HYPERURICAEMIA
     Route: 048
     Dates: start: 20040930
  9. MOBIC [Concomitant]
     Indication: MUSCULOSKELETAL PAIN
     Route: 048
     Dates: start: 20060823
  10. SERUMLIPIDREDUCING AGENTS [Concomitant]
     Indication: HYPERLIPIDAEMIA
     Route: 048
     Dates: start: 20060701
  11. PRORENAL [Concomitant]
     Indication: LUMBAR SPINAL STENOSIS
     Route: 048
     Dates: start: 20060701
  12. KETOPROFEN [Concomitant]
     Indication: MUSCULOSKELETAL PAIN
     Dosage: DOSE: 1 SHEET
  13. PURSENNID [Concomitant]
     Indication: CONSTIPATION
     Route: 048
     Dates: start: 20060823
  14. NEUROTROPIN [Concomitant]
     Indication: MUSCULOSKELETAL PAIN
     Dosage: DOSE: 8 UNITS
     Route: 048
     Dates: start: 20060824

REACTIONS (2)
  - ATRIAL FIBRILLATION [None]
  - FALL [None]
